FAERS Safety Report 6527123-5 (Version None)
Quarter: 2010Q1

REPORT INFORMATION
  Report Type: 
  Country: None (occurrence: None)
  Receive Date: 20100105
  Receipt Date: 20091228
  Transmission Date: 20100710
  Serious: Yes (Hospitalization)
  Sender: FDA-Public Use
  Company Number: US-ELI_LILLY_AND_COMPANY-US200912005974

PATIENT
  Sex: Male

DRUGS (3)
  1. HUMULIN N [Suspect]
     Indication: TYPE 2 DIABETES MELLITUS
     Dosage: UNK, AS NEEDED
     Dates: start: 20010101
  2. GLIPIZIDE [Concomitant]
     Dosage: 10 MG, DAILY (1/D)
  3. METFORMIN HCL [Concomitant]
     Dosage: 20 MG, 2/D

REACTIONS (2)
  - ANKLE FRACTURE [None]
  - HIP FRACTURE [None]
